FAERS Safety Report 12890889 (Version 4)
Quarter: 2016Q4

REPORT INFORMATION
  Report Type: Spontaneous
  Country: US (occurrence: US)
  Receive Date: 20161027
  Receipt Date: 20161201
  Transmission Date: 20170207
  Serious: Yes (Disabling, Other)
  Sender: FDA-Public Use
  Company Number: GXBR2016US003196

PATIENT
  Sex: Female
  Weight: 46.71 kg

DRUGS (5)
  1. MOTRIN [Concomitant]
     Active Substance: IBUPROFEN
     Indication: PAIN
     Dosage: 500 MG, UNK
     Route: 065
  2. CLOBETASOL PROPIONATE. [Suspect]
     Active Substance: CLOBETASOL PROPIONATE
     Indication: PRURITUS
  3. CLOBETASOL PROPIONATE. [Suspect]
     Active Substance: CLOBETASOL PROPIONATE
     Indication: SKIN BURNING SENSATION
     Dosage: UNK DF, UNK
     Route: 061
     Dates: start: 2008
  4. CLOBETASOL PROPIONATE. [Suspect]
     Active Substance: CLOBETASOL PROPIONATE
     Indication: SCLERODERMA
  5. AMOXICILLIN. [Concomitant]
     Active Substance: AMOXICILLIN
     Indication: INFECTION
     Dosage: UNK DF, UNK
     Route: 065

REACTIONS (9)
  - Abasia [Not Recovered/Not Resolved]
  - Extremity contracture [Not Recovered/Not Resolved]
  - Muscular weakness [Not Recovered/Not Resolved]
  - Disease progression [Not Recovered/Not Resolved]
  - Application site induration [Not Recovered/Not Resolved]
  - Application site movement impairment [Not Recovered/Not Resolved]
  - Dysstasia [Not Recovered/Not Resolved]
  - Scleroderma [Not Recovered/Not Resolved]
  - Application site discolouration [Not Recovered/Not Resolved]
